FAERS Safety Report 10907338 (Version 1)
Quarter: 2015Q1

REPORT INFORMATION
  Report Type: Spontaneous
  Country: US (occurrence: None)
  Receive Date: 20150309
  Receipt Date: 20150309
  Transmission Date: 20150721
  Serious: No
  Sender: FDA-Public Use
  Company Number: None

PATIENT
  Age: 42 Year
  Sex: Female
  Weight: 95.26 kg

DRUGS (7)
  1. MELOXICAM. [Concomitant]
     Active Substance: MELOXICAM
  2. LEVAQUIN [Suspect]
     Active Substance: LEVOFLOXACIN
     Indication: ATYPICAL PNEUMONIA
     Dosage: 1 ONCE DAILY TAKEN BY MOUTH
     Route: 048
     Dates: start: 20150216, end: 20150220
  3. PROZAC [Concomitant]
     Active Substance: FLUOXETINE HYDROCHLORIDE
  4. VITAMIN D [Concomitant]
     Active Substance: CHOLECALCIFEROL
  5. CALCIUM SUPPLEMENT [Concomitant]
     Active Substance: CALCIUM
  6. ARIMIDEX [Concomitant]
     Active Substance: ANASTROZOLE
  7. VAGIFEM [Concomitant]
     Active Substance: ESTRADIOL

REACTIONS (5)
  - Tendon injury [None]
  - Arthralgia [None]
  - Ageusia [None]
  - Vision blurred [None]
  - Tongue disorder [None]

NARRATIVE: CASE EVENT DATE: 20150216
